FAERS Safety Report 7038621-2 (Version None)
Quarter: 2010Q4

REPORT INFORMATION
  Report Type: 
  Country: None (occurrence: None)
  Receive Date: 20101011
  Receipt Date: 20100926
  Transmission Date: 20110411
  Serious: No
  Sender: FDA-Public Use
  Company Number: US-PFIZER INC-2010122677

PATIENT
  Sex: Male

DRUGS (2)
  1. LYRICA [Suspect]
     Indication: TRIGEMINAL NEURALGIA
     Dosage: 50 MG, UNK
     Dates: start: 20100925
  2. LYRICA [Suspect]
     Indication: NEURALGIA

REACTIONS (1)
  - DYSPHAGIA [None]
